FAERS Safety Report 6868928-0 (Version None)
Quarter: 2010Q3

REPORT INFORMATION
  Report Type: 
  Country: None (occurrence: None)
  Receive Date: 20100722
  Receipt Date: 20080621
  Transmission Date: 20110219
  Serious: No
  Sender: FDA-Public Use
  Company Number: US-PFIZER INC-2008052133

PATIENT
  Sex: Female
  Weight: 108.86 kg

DRUGS (5)
  1. CHANTIX [Suspect]
     Indication: SMOKING CESSATION THERAPY
     Dates: start: 20080611
  2. LIPITOR [Concomitant]
     Indication: BLOOD CHOLESTEROL INCREASED
  3. LOPRESSOR [Concomitant]
     Indication: HYPERTENSION
  4. ALL OTHER THERAPEUTIC PRODUCTS [Concomitant]
  5. ASPIRINE [Concomitant]

REACTIONS (2)
  - DRY SKIN [None]
  - PRURITUS [None]
